FAERS Safety Report 9549126 (Version 1)
Quarter: 2013Q3

REPORT INFORMATION
  Report Type: Spontaneous
  Country: US (occurrence: None)
  Receive Date: 20130701
  Receipt Date: 20130701
  Transmission Date: 20140515
  Serious: Yes (Life-Threatening)
  Sender: FDA-Public Use
  Company Number: 227431

PATIENT
  Sex: 0

DRUGS (1)
  1. FENTANYL CITRATE [Suspect]
     Dosage: 50 MCG, ONCE, INTRAVENOUS
     Route: 042
     Dates: start: 200903, end: 200903

REACTIONS (1)
  - Respiratory depression [None]
